FAERS Safety Report 22366729 (Version 1)
Quarter: 2023Q2

REPORT INFORMATION
  Report Type: Spontaneous
  Country: US (occurrence: None)
  Receive Date: 20230524
  Receipt Date: 20230524
  Transmission Date: 20230722
  Serious: Yes (Hospitalization)
  Sender: FDA-Public Use
  Company Number: None

PATIENT
  Sex: Female

DRUGS (15)
  1. IBRANCE [Suspect]
     Active Substance: PALBOCICLIB
     Indication: Breast cancer female
     Dosage: OTHER QUANTITY : 1T;?FREQUENCY : DAILY;?OTHER ROUTE : PO 21D ON/7D OFF;?
     Route: 050
  2. CLONAZEPAM [Concomitant]
     Active Substance: CLONAZEPAM
  3. PANTOPRAZOLE [Concomitant]
  4. ROPINIROLE [Concomitant]
     Active Substance: ROPINIROLE
  5. FAMOTIDINE [Concomitant]
  6. MELOXICAM [Concomitant]
  7. LISINOPRIL [Concomitant]
  8. GABAPENTIN [Concomitant]
     Active Substance: GABAPENTIN
  9. ATORVASTATIN [Concomitant]
  10. ANASTROZOLE [Concomitant]
     Active Substance: ANASTROZOLE
  11. LANTUS [Concomitant]
     Active Substance: INSULIN GLARGINE
  12. CALCIUM [Concomitant]
  13. VITAMIN D3 [Concomitant]
     Active Substance: CHOLECALCIFEROL
  14. SEROQUEL [Concomitant]
  15. METFORMIN [Concomitant]

REACTIONS (2)
  - Renal disorder [None]
  - Therapy interrupted [None]
